FAERS Safety Report 22028053 (Version 1)
Quarter: 2023Q1

REPORT INFORMATION
  Report Type: Spontaneous
  Country: US (occurrence: None)
  Receive Date: 20230223
  Receipt Date: 20230223
  Transmission Date: 20230418
  Serious: Yes (Other)
  Sender: FDA-Public Use
  Company Number: US-MLMSERVICE-20230202-4077964-1

PATIENT
  Age: 59 Year
  Sex: Female

DRUGS (24)
  1. DILTIAZEM [Interacting]
     Active Substance: DILTIAZEM
     Indication: Cardiomyopathy
     Route: 065
  2. FLUOXETINE [Interacting]
     Active Substance: FLUOXETINE HYDROCHLORIDE
     Indication: Major depression
     Route: 065
  3. FLUOXETINE [Interacting]
     Active Substance: FLUOXETINE HYDROCHLORIDE
     Indication: Generalised anxiety disorder
  4. DOXEPIN [Interacting]
     Active Substance: DOXEPIN
     Indication: Major depression
     Route: 065
     Dates: end: 2020
  5. DOXEPIN [Interacting]
     Active Substance: DOXEPIN
     Indication: Generalised anxiety disorder
  6. BUPROPION HYDROCHLORIDE [Interacting]
     Active Substance: BUPROPION HYDROCHLORIDE
     Indication: Major depression
     Route: 065
     Dates: end: 202109
  7. BUPROPION HYDROCHLORIDE [Interacting]
     Active Substance: BUPROPION HYDROCHLORIDE
     Indication: Generalised anxiety disorder
  8. ACETAMINOPHEN\HYDROCODONE [Interacting]
     Active Substance: ACETAMINOPHEN\HYDROCODONE
     Indication: Pain
     Route: 065
     Dates: end: 2019
  9. ACETAMINOPHEN\HYDROCODONE [Interacting]
     Active Substance: ACETAMINOPHEN\HYDROCODONE
     Dosage: 10 MG-325 MG
     Route: 065
     Dates: start: 2019, end: 202109
  10. PRAMIPEXOLE [Concomitant]
     Active Substance: PRAMIPEXOLE
     Indication: Restless legs syndrome
     Route: 065
  11. ATORVASTATIN [Concomitant]
     Active Substance: ATORVASTATIN
     Indication: Hyperlipidaemia
     Route: 065
  12. FERROUS SULFATE [Concomitant]
     Active Substance: FERROUS SULFATE
     Indication: Hypovitaminosis
     Route: 065
  13. ALBUTEROL\IPRATROPIUM [Concomitant]
     Active Substance: ALBUTEROL\IPRATROPIUM
     Indication: Asthma
     Dosage: 2.5-0.5 MG/3 ML
     Route: 065
  14. LEVOTHYROXINE [Concomitant]
     Active Substance: LEVOTHYROXINE
     Indication: Hypothyroidism
     Route: 065
  15. SITAGLIPTIN [Concomitant]
     Active Substance: SITAGLIPTIN
     Indication: Diabetes mellitus
     Route: 065
  16. BACLOFEN [Concomitant]
     Active Substance: BACLOFEN
     Indication: Muscle spasms
     Route: 065
  17. GLIPIZIDE [Concomitant]
     Active Substance: GLIPIZIDE
     Indication: Diabetes mellitus
     Route: 065
  18. GABAPENTIN [Concomitant]
     Active Substance: GABAPENTIN
     Indication: Neuropathy peripheral
     Route: 065
  19. MONTELUKAST [Concomitant]
     Active Substance: MONTELUKAST SODIUM
     Indication: Asthma
     Route: 065
  20. FUROSEMIDE [Concomitant]
     Active Substance: FUROSEMIDE
     Indication: Cardiomyopathy
     Route: 065
  21. CALCIUM CARBONATE [Concomitant]
     Active Substance: CALCIUM CARBONATE
     Indication: Hypovitaminosis
     Route: 065
  22. ASPIRIN [Concomitant]
     Active Substance: ASPIRIN
     Indication: Cardiomyopathy
     Route: 065
  23. LOSARTAN [Concomitant]
     Active Substance: LOSARTAN
     Indication: Cardiomyopathy
     Route: 065
  24. METFORMIN [Concomitant]
     Active Substance: METFORMIN HYDROCHLORIDE
     Indication: Diabetes mellitus
     Route: 065

REACTIONS (5)
  - Sedation complication [Recovered/Resolved]
  - Drug-genetic interaction [Recovered/Resolved]
  - Drug interaction [Recovered/Resolved]
  - Fall [Recovered/Resolved]
  - Joint injury [Unknown]

NARRATIVE: CASE EVENT DATE: 20200101
